FAERS Safety Report 8838483 (Version 1)
Quarter: 2012Q4

REPORT INFORMATION
  Report Type: 
  Country: US (occurrence: US)
  Receive Date: 20121012
  Receipt Date: 20121012
  Transmission Date: 20130627
  Serious: No
  Sender: FDA-Public Use
  Company Number: US-TEVA-364142USA

PATIENT
  Sex: Female
  Weight: 45.4 kg

DRUGS (7)
  1. NUVIGIL [Suspect]
     Indication: ADRENAL DISORDER
     Dosage: 250 Milligram Daily; Q AM
     Route: 048
     Dates: start: 201202
  2. NUVIGIL [Suspect]
     Indication: DEPRESSION
  3. CYMBALTA [Concomitant]
     Indication: DEPRESSION
     Route: 048
  4. VIT B 6 [Concomitant]
     Indication: VITAMIN SUPPLEMENTATION
  5. NEURO PTX [Concomitant]
     Indication: VITAMIN SUPPLEMENTATION
  6. NEURO 2 [Concomitant]
     Indication: VITAMIN SUPPLEMENTATION
  7. ADB 5 [Concomitant]
     Indication: ADRENAL DISORDER

REACTIONS (3)
  - Incontinence [Not Recovered/Not Resolved]
  - Diarrhoea [Not Recovered/Not Resolved]
  - Off label use [Unknown]
